FAERS Safety Report 7776866-4 (Version None)
Quarter: 2011Q3

REPORT INFORMATION
  Report Type: 
  Country: None (occurrence: None)
  Receive Date: 20110926
  Receipt Date: 20110907
  Transmission Date: 20111222
  Serious: Yes (Other)
  Sender: FDA-Public Use
  Company Number: US-BAYER-2011-083898

PATIENT
  Sex: Female

DRUGS (11)
  1. ASPIRIN [Suspect]
  2. ZOLOFT [Concomitant]
  3. LIPITOR [Concomitant]
  4. BENADRYL [Suspect]
  5. PENICILLIN [Suspect]
  6. MAGNESIUM OXIDE [Suspect]
  7. ACCUPRIL [Concomitant]
  8. CELEBREX [Concomitant]
  9. NEURONTIN [Concomitant]
  10. BACTRIM [Suspect]
  11. PROTONIX [Concomitant]

REACTIONS (1)
  - HYPERSENSITIVITY [None]
